FAERS Safety Report 16219090 (Version 2)
Quarter: 2019Q4

REPORT INFORMATION
  Report Type: Spontaneous
  Country: US (occurrence: US)
  Receive Date: 20190419
  Receipt Date: 20191023
  Transmission Date: 20200122
  Serious: Yes (Hospitalization, Other)
  Sender: FDA-Public Use
  Company Number: US-ASTRAZENECA-2019SE55606

PATIENT
  Age: 52 Year
  Sex: Male
  Weight: 117.9 kg

DRUGS (15)
  1. PRILOSEC [Suspect]
     Active Substance: OMEPRAZOLE MAGNESIUM
     Indication: GASTROOESOPHAGEAL REFLUX DISEASE
     Dosage: GENERIC
     Route: 065
     Dates: start: 200905, end: 201606
  2. PRILOSEC [Suspect]
     Active Substance: OMEPRAZOLE MAGNESIUM
     Indication: GASTROOESOPHAGEAL REFLUX DISEASE
     Route: 048
     Dates: start: 201302, end: 201702
  3. LISINOPRIL. [Concomitant]
     Active Substance: LISINOPRIL
  4. TRAMADOL. [Concomitant]
     Active Substance: TRAMADOL
  5. ALPROSTADIL. [Concomitant]
     Active Substance: ALPROSTADIL
  6. DICLOFENAC [Concomitant]
     Active Substance: DICLOFENAC
  7. SIMVASTATIN. [Concomitant]
     Active Substance: SIMVASTATIN
  8. GAVISCON [Concomitant]
     Active Substance: ALUMINUM HYDROXIDE\MAGNESIUM CARBONATE
  9. RANITIDINE. [Concomitant]
     Active Substance: RANITIDINE
  10. TUMS [Concomitant]
     Active Substance: CALCIUM CARBONATE
  11. ACETAMINOPHEN. [Concomitant]
     Active Substance: ACETAMINOPHEN
  12. PANTOPRAZOLE [Suspect]
     Active Substance: PANTOPRAZOLE
     Indication: GASTROOESOPHAGEAL REFLUX DISEASE
     Dosage: GENERIC
     Route: 065
  13. CYCLOSPORINE. [Concomitant]
     Active Substance: CYCLOSPORINE
  14. CINACALCET. [Concomitant]
     Active Substance: CINACALCET
  15. AMLODIPINE [Concomitant]
     Active Substance: AMLODIPINE BESYLATE

REACTIONS (4)
  - Chronic kidney disease [Not Recovered/Not Resolved]
  - End stage renal disease [Not Recovered/Not Resolved]
  - Nephrogenic anaemia [Unknown]
  - Acute kidney injury [Unknown]

NARRATIVE: CASE EVENT DATE: 2009
